FAERS Safety Report 9333562 (Version 1)
Quarter: 2013Q2

REPORT INFORMATION
  Report Type: Spontaneous
  Country: US (occurrence: US)
  Receive Date: 20130606
  Receipt Date: 20130606
  Transmission Date: 20140414
  Serious: No
  Sender: FDA-Public Use
  Company Number: US-AMGEN-USASP2013009719

PATIENT
  Age: 71 Year
  Sex: Male
  Weight: 72.56 kg

DRUGS (5)
  1. XGEVA [Suspect]
     Indication: METASTASES TO BONE
     Dosage: 120 MG, QMO
     Route: 058
     Dates: start: 20111023, end: 20121207
  2. TRELSTAR [Concomitant]
     Indication: PROSTATE CANCER
     Dosage: UNK UNK, Q3MO
     Route: 030
     Dates: start: 20090103
  3. NORCO [Concomitant]
     Indication: PAIN
     Dosage: 10/325
     Route: 048
  4. PREDNISONE [Concomitant]
     Dosage: UNK
     Route: 048
  5. DOSATAXEL [Concomitant]
     Dosage: UNK
     Dates: start: 2008

REACTIONS (3)
  - Tooth abscess [Unknown]
  - Dental caries [Unknown]
  - Localised infection [Unknown]
